FAERS Safety Report 5701195-X (Version None)
Quarter: 2008Q2

REPORT INFORMATION
  Report Type: 
  Country: None (occurrence: None)
  Receive Date: 20080410
  Receipt Date: 20080403
  Transmission Date: 20081010
  Serious: Yes (Life-Threatening)
  Sender: FDA-Public Use
  Company Number: PL-BOEHRINGER INGELHEIM GMBH, GERMANY-2008-AP-00091AP

PATIENT
  Sex: Male

DRUGS (5)
  1. MICARDIS [Suspect]
     Indication: SECONDARY HYPERTENSION
     Route: 048
     Dates: start: 20080326, end: 20080404
  2. DOPEGYT [Concomitant]
  3. ENARENAL 20 [Concomitant]
  4. METOCARD [Concomitant]
  5. CALPEROS [Concomitant]

REACTIONS (1)
  - BLOOD PRESSURE INCREASED [None]
